FAERS Safety Report 12833939 (Version 1)
Quarter: 2016Q4

REPORT INFORMATION
  Report Type: Spontaneous
  Country: CA (occurrence: CA)
  Receive Date: 20161010
  Receipt Date: 20161010
  Transmission Date: 20170207
  Serious: No
  Sender: FDA-Public Use
  Company Number: CA-DUSA PHARMACEUTICALS, INC.-1058164

PATIENT
  Age: 63 Year
  Sex: Female
  Weight: 81.82 kg

DRUGS (2)
  1. LEVULAN KERASTICK [Suspect]
     Active Substance: AMINOLEVULINIC ACID HYDROCHLORIDE
     Route: 061
     Dates: start: 20160316, end: 20160316
  2. VALSARTAN. [Concomitant]
     Active Substance: VALSARTAN
     Route: 048
     Dates: start: 2015

REACTIONS (2)
  - Application site discolouration [Unknown]
  - Drug ineffective [Unknown]
